FAERS Safety Report 7453421-7 (Version None)
Quarter: 2011Q2

REPORT INFORMATION
  Report Type: 
  Country: None (occurrence: None)
  Receive Date: 20110502
  Receipt Date: 20110128
  Transmission Date: 20111010
  Serious: No
  Sender: FDA-Public Use
  Company Number: US-ASTRAZENECA-2011SE05138

PATIENT
  Age: 77 Year
  Sex: Female
  Weight: 70.3 kg

DRUGS (7)
  1. PEPCID AC [Concomitant]
  2. NEXIUM [Suspect]
     Indication: GASTROOESOPHAGEAL REFLUX DISEASE
     Route: 048
     Dates: start: 20040101, end: 20110101
  3. PRILOSEC [Suspect]
     Route: 048
  4. VICODIN [Concomitant]
     Indication: BACK PAIN
  5. DILTIAZEM [Concomitant]
  6. ZETIA [Concomitant]
  7. LOSARTAN POTASSIUM AND HYDROCHLOROTHIAZIDE [Concomitant]

REACTIONS (3)
  - GASTROOESOPHAGEAL REFLUX DISEASE [None]
  - DRUG INEFFECTIVE [None]
  - DRUG DOSE OMISSION [None]
